FAERS Safety Report 23586915 (Version 1)
Quarter: 2024Q1

REPORT INFORMATION
  Report Type: Spontaneous
  Country: US (occurrence: US)
  Receive Date: 20240301
  Receipt Date: 20240301
  Transmission Date: 20240410
  Serious: No
  Sender: FDA-Public Use
  Company Number: US-BRISTOL-MYERS SQUIBB COMPANY-2024-034048

PATIENT
  Age: 68 Year
  Sex: Female
  Weight: 89.81 kg

DRUGS (1)
  1. REVLIMID [Suspect]
     Active Substance: LENALIDOMIDE
     Indication: Product used for unknown indication
     Dosage: 1 CAPSULE EVERYDAY FOR 21 DAYS, THEN 7 DAYS OFF

REACTIONS (1)
  - Drug hypersensitivity [Unknown]
